FAERS Safety Report 8783247 (Version 2)
Quarter: 2012Q4

REPORT INFORMATION
  Report Type: 
  Country: US (occurrence: US)
  Receive Date: 20120913
  Receipt Date: 20120921
  Transmission Date: 20130627
  Serious: Yes (Death, Other)
  Sender: FDA-Public Use
  Company Number: US-B.I. PHARMACEUTICALS,INC./RIDGEFIELD-2012-BP-22419BP

PATIENT
  Age: 88 Year
  Sex: Female
  Weight: 91.62 kg

DRUGS (12)
  1. PRADAXA [Suspect]
     Indication: ATRIAL FIBRILLATION
     Dosage: 300 mg
  2. LASIX [Concomitant]
  3. TOPROL XL [Concomitant]
     Dosage: 50 mg
  4. DIOVAN [Concomitant]
     Dosage: 320 mg
  5. POTASSIUM CHLORIDE [Concomitant]
     Dosage: 10 mEq
  6. ASPIRIN [Concomitant]
     Dosage: 81 mg
  7. COLACE [Concomitant]
     Dosage: 100 mg
  8. FUROSEMIDE [Concomitant]
     Dosage: 40 mg
  9. LIPITOR [Concomitant]
     Dosage: 40 mg
  10. MICRO-K [Concomitant]
     Dosage: 10 mEq
  11. PERCOCET 5 [Concomitant]
  12. NYSTATIN TOPICAL CREAM [Concomitant]
     Route: 061

REACTIONS (17)
  - Cardiac arrest [Fatal]
  - Hypoglycaemia [Fatal]
  - Anaemia [Fatal]
  - Faeces discoloured [Unknown]
  - Embolic stroke [Unknown]
  - Haematuria [Unknown]
  - Haemoglobin decreased [Unknown]
  - Haematocrit decreased [Unknown]
  - Haematemesis [Unknown]
  - International normalised ratio increased [Unknown]
  - Depressed level of consciousness [Unknown]
  - Dyspnoea [Unknown]
  - Gait disturbance [Unknown]
  - Fall [Unknown]
  - Speech disorder [Unknown]
  - Neck pain [Unknown]
  - Back pain [Unknown]
